FAERS Safety Report 6659065-9 (Version None)
Quarter: 2010Q1

REPORT INFORMATION
  Report Type: 
  Country: None (occurrence: None)
  Receive Date: 20100330
  Receipt Date: 20100319
  Transmission Date: 20100710
  Serious: Yes (Other)
  Sender: FDA-Public Use
  Company Number: GB-PFIZER INC-2010035351

PATIENT
  Age: 71 Year
  Sex: Male
  Weight: 95 kg

DRUGS (6)
  1. CHAMPIX [Suspect]
     Indication: SMOKING CESSATION THERAPY
     Dosage: 1 MG, 2X/DAY
     Route: 048
     Dates: start: 20100205, end: 20100302
  2. BENDROFLUMETHIAZIDE [Concomitant]
     Indication: HYPERTENSION
     Dosage: 2.5 MG, 1X/DAY
     Route: 048
     Dates: start: 20000101
  3. LANSOPRAZOLE [Concomitant]
     Indication: GASTROOESOPHAGEAL REFLUX DISEASE
     Dosage: 15 MG, 1X/DAY
     Route: 048
     Dates: start: 20000101
  4. METFORMIN [Concomitant]
     Indication: DIABETES MELLITUS
     Dosage: 500 MG, 2X/DAY
     Route: 048
     Dates: start: 20070101
  5. RAMIPRIL [Concomitant]
     Indication: DIABETES MELLITUS
     Dosage: 2.5 MG, 1X/DAY
     Route: 048
     Dates: start: 20090101
  6. SIMVASTATIN [Concomitant]
     Indication: DIABETES MELLITUS
     Dosage: 40 MG, 1X/DAY
     Route: 048
     Dates: start: 20070101

REACTIONS (4)
  - DEPRESSED MOOD [None]
  - NAUSEA [None]
  - RASH [None]
  - SKIN DISORDER [None]
